FAERS Safety Report 6057504-8 (Version None)
Quarter: 2009Q1

REPORT INFORMATION
  Report Type: 
  Country: None (occurrence: None)
  Receive Date: 20090127
  Receipt Date: 20090127
  Transmission Date: 20090719
  Serious: Yes (Other)
  Sender: FDA-Public Use
  Company Number: None

PATIENT
  Age: 45 Year
  Sex: Female
  Weight: 47.1741 kg

DRUGS (1)
  1. KENALOG [Suspect]
     Indication: PSORIASIS
     Dosage: INJECTION 1X
     Dates: start: 20081010, end: 20081010

REACTIONS (5)
  - INJECTION SITE DISCOLOURATION [None]
  - INJECTION SITE REACTION [None]
  - MENSTRUAL DISORDER [None]
  - METRORRHAGIA [None]
  - OLIGOMENORRHOEA [None]
